FAERS Safety Report 14727730 (Version 1)
Quarter: 2018Q2

REPORT INFORMATION
  Report Type: Report from Study
  Country: US (occurrence: US)
  Receive Date: 20180406
  Receipt Date: 20180406
  Transmission Date: 20180711
  Serious: Yes (Other)
  Sender: FDA-Public Use
  Company Number: US-TEVA-2018-US-878043

PATIENT
  Sex: Female

DRUGS (2)
  1. COPAXONE [Suspect]
     Active Substance: GLATIRAMER ACETATE
     Indication: MULTIPLE SCLEROSIS
     Route: 058
     Dates: start: 20010403, end: 20081201
  2. COPAXONE [Suspect]
     Active Substance: GLATIRAMER ACETATE
     Route: 058
     Dates: start: 20090601, end: 20130901

REACTIONS (4)
  - Impaired healing [Unknown]
  - Injection site injury [Unknown]
  - Injection site discolouration [Unknown]
  - Injection site indentation [Unknown]

NARRATIVE: CASE EVENT DATE: 2003
